FAERS Safety Report 5478569-8 (Version None)
Quarter: 2007Q4

REPORT INFORMATION
  Report Type: 
  Country: None (occurrence: None)
  Receive Date: 20071005
  Receipt Date: 20070926
  Transmission Date: 20080405
  Serious: Yes (Hospitalization)
  Sender: FDA-Public Use
  Company Number: JP-ELI_LILLY_AND_COMPANY-JP200710000958

PATIENT
  Age: 72 Year
  Sex: Male

DRUGS (2)
  1. GEMZAR [Suspect]
     Indication: PANCREATIC CARCINOMA STAGE IV
     Dosage: UNK, UNKNOWN
     Route: 042
  2. TS 1 [Concomitant]
     Indication: PANCREATIC CARCINOMA STAGE IV
     Dosage: UNK, UNKNOWN
     Route: 048

REACTIONS (6)
  - ANAEMIA [None]
  - FAECES DISCOLOURED [None]
  - HYPOTENSION [None]
  - MALAISE [None]
  - OESOPHAGEAL VARICES HAEMORRHAGE [None]
  - VARICES OESOPHAGEAL [None]
